FAERS Safety Report 7486978-0 (Version None)
Quarter: 2011Q2

REPORT INFORMATION
  Report Type: 
  Country: None (occurrence: None)
  Receive Date: 20110517
  Receipt Date: 20110503
  Transmission Date: 20111010
  Serious: Yes (Death, Hospitalization, Other)
  Sender: FDA-Public Use
  Company Number: US-ELI_LILLY_AND_COMPANY-US201104005459

PATIENT
  Sex: Female
  Weight: 80 kg

DRUGS (7)
  1. CELEXA [Concomitant]
  2. GENOTROPIN [Concomitant]
  3. FORTEO [Suspect]
     Indication: OSTEOPOROSIS
     Dosage: 20 UG, QD
     Dates: start: 20100101
  4. LASIX [Concomitant]
  5. GABAPENTIN [Concomitant]
  6. OMEPRAZOLE [Concomitant]
  7. NORCO [Concomitant]

REACTIONS (3)
  - RESPIRATORY FAILURE [None]
  - MYOCARDIAL INFARCTION [None]
  - CARDIAC FAILURE CHRONIC [None]
